FAERS Safety Report 5069794-9 (Version None)
Quarter: 2006Q3

REPORT INFORMATION
  Report Type: 
  Country: None (occurrence: None)
  Receive Date: 20060803
  Receipt Date: 20060727
  Transmission Date: 20061208
  Serious: Yes (Death, Congenital Anomaly)
  Sender: FDA-Public Use
  Company Number: GB-GLAXOSMITHKLINE-B0432961A

PATIENT

DRUGS (2)
  1. ZIDOVUDINE [Suspect]
     Indication: DRUG EXPOSURE DURING PREGNANCY
     Dosage: 1Z TWICE PER DAY
     Dates: end: 20060306
  2. KALETRA [Suspect]
     Dosage: 3Z TWICE PER DAY

REACTIONS (3)
  - DOUBLE OUTLET RIGHT VENTRICLE [None]
  - STILLBIRTH [None]
  - VENTRICULAR SEPTAL DEFECT [None]
